FAERS Safety Report 25714480 (Version 2)
Quarter: 2025Q3

REPORT INFORMATION
  Report Type: Spontaneous
  Country: EU (occurrence: EU)
  Receive Date: 20250822
  Receipt Date: 20250917
  Transmission Date: 20251020
  Serious: Yes (Death, Life-Threatening, Other)
  Sender: SANDOZ
  Company Number: EU-MLMSERVICE-20250807-PI606199-00258-1

PATIENT
  Age: 22 Year
  Sex: Male

DRUGS (11)
  1. ALPRAZOLAM [Interacting]
     Active Substance: ALPRAZOLAM
     Indication: Major depression
     Route: 065
  2. ALPRAZOLAM [Interacting]
     Active Substance: ALPRAZOLAM
     Indication: Panic disorder
  3. ALPRAZOLAM [Interacting]
     Active Substance: ALPRAZOLAM
     Indication: Panic disorder
  4. CLOZAPINE [Interacting]
     Active Substance: CLOZAPINE
     Indication: Major depression
     Route: 048
  5. CLOZAPINE [Interacting]
     Active Substance: CLOZAPINE
     Indication: Panic disorder
  6. CLOZAPINE [Interacting]
     Active Substance: CLOZAPINE
     Indication: Product used for unknown indication
  7. PAROXETINE [Interacting]
     Active Substance: PAROXETINE
     Indication: Major depression
     Route: 048
  8. PAROXETINE [Interacting]
     Active Substance: PAROXETINE
     Indication: Panic disorder
  9. QUETIAPINE [Interacting]
     Active Substance: QUETIAPINE
     Indication: Major depression
     Route: 065
  10. QUETIAPINE [Interacting]
     Active Substance: QUETIAPINE
     Indication: Panic disorder
  11. QUETIAPINE [Interacting]
     Active Substance: QUETIAPINE
     Indication: Panic disorder

REACTIONS (18)
  - Toxicity to various agents [Fatal]
  - Intentional overdose [Fatal]
  - Potentiating drug interaction [Fatal]
  - Serotonin syndrome [Fatal]
  - Electrocardiogram QT prolonged [Fatal]
  - Ventricular arrhythmia [Fatal]
  - Brain oedema [Fatal]
  - Pulmonary congestion [Fatal]
  - Completed suicide [Fatal]
  - Pulmonary oedema [Fatal]
  - Intentional self-injury [Fatal]
  - Toxicity to various agents [Fatal]
  - Skin laceration [Fatal]
  - Drug interaction [Fatal]
  - Petechiae [Fatal]
  - Bladder dilatation [Fatal]
  - Lividity [Fatal]
  - Epistaxis [Unknown]
